FAERS Safety Report 14378238 (Version 2)
Quarter: 2018Q2

REPORT INFORMATION
  Report Type: Report from Study
  Country: US (occurrence: US)
  Receive Date: 20180111
  Receipt Date: 20180516
  Transmission Date: 20180711
  Serious: Yes (Hospitalization)
  Sender: FDA-Public Use
  Company Number: US-ACTELION-A-US2017-164421

PATIENT
  Age: 69 Year
  Sex: Female
  Weight: 82.86 kg

DRUGS (4)
  1. ELIQUIS [Concomitant]
     Active Substance: APIXABAN
  2. DILTIAZEM. [Concomitant]
     Active Substance: DILTIAZEM
  3. OPSUMIT [Suspect]
     Active Substance: MACITENTAN
     Indication: PULMONARY ARTERIAL HYPERTENSION
     Dosage: 10 MG, UNK
     Route: 048
  4. ADEMPAS [Concomitant]
     Active Substance: RIOCIGUAT

REACTIONS (4)
  - Bronchial secretion retention [Unknown]
  - Pneumothorax [Unknown]
  - Chronic obstructive pulmonary disease [Unknown]
  - Fluid retention [Unknown]
